FAERS Safety Report 13125698 (Version 2)
Quarter: 2017Q1

REPORT INFORMATION
  Report Type: Spontaneous
  Country: JP (occurrence: JP)
  Receive Date: 20170118
  Receipt Date: 20170217
  Transmission Date: 20170428
  Serious: Yes (Death, Other)
  Sender: FDA-Public Use
  Company Number: JP-MALLINCKRODT-T201402654

PATIENT
  Age: 50 Year
  Sex: Female

DRUGS (55)
  1. METHADONE [Suspect]
     Active Substance: METHADONE HYDROCHLORIDE
     Dosage: 20 MG, (60 MG DAILY DOSE)
     Route: 048
     Dates: start: 20140210, end: 20140216
  2. MORPHINE HYDROCHLORIDE HYDRATE [Suspect]
     Active Substance: MORPHINE HYDROCHLORIDE
     Dosage: (192 MG DAILY DOSE)
     Route: 058
     Dates: start: 20140418, end: 20140418
  3. MORPHINE HYDROCHLORIDE HYDRATE [Suspect]
     Active Substance: MORPHINE HYDROCHLORIDE
     Dosage: (288 MG DAILY DOSE)
     Route: 051
     Dates: start: 20140509, end: 20140509
  4. LYRICA [Concomitant]
     Active Substance: PREGABALIN
     Dosage: 300 MG
     Route: 048
     Dates: start: 20140129, end: 20140626
  5. PURSENNID [Concomitant]
     Active Substance: SENNOSIDES A AND B
     Dosage: 24 MG, UNK
     Route: 048
     Dates: end: 20140626
  6. ESTRANA [Concomitant]
     Active Substance: ESTRADIOL
     Dosage: 0.72 MG, UNK
     Route: 062
     Dates: end: 20140422
  7. PROMAC [Concomitant]
     Active Substance: NITROFURANTOIN
     Dosage: 150 MG
     Route: 048
     Dates: start: 20140204, end: 20140626
  8. ROPION [Concomitant]
     Active Substance: FLURBIPROFEN AXETIL
     Dosage: 50 MG
     Route: 051
     Dates: start: 20140530, end: 20140530
  9. METHADONE [Suspect]
     Active Substance: METHADONE HYDROCHLORIDE
     Indication: CANCER PAIN
     Dosage: 10 MG, (30 MG DAILY DOSE)
     Route: 048
     Dates: start: 20140127, end: 20140202
  10. METHADONE [Suspect]
     Active Substance: METHADONE HYDROCHLORIDE
     Dosage: 25 MG, (75 MG DAILY DOSE)
     Route: 048
     Dates: start: 20140217, end: 20140416
  11. MORPHINE HYDROCHLORIDE HYDRATE [Suspect]
     Active Substance: MORPHINE HYDROCHLORIDE
     Dosage: (144 MG DAILY DOSE)
     Route: 058
     Dates: start: 20140417, end: 20140417
  12. MORPHINE HYDROCHLORIDE HYDRATE [Suspect]
     Active Substance: MORPHINE HYDROCHLORIDE
     Dosage: (96 MG DAILY DOSE)
     Route: 051
     Dates: start: 20140421, end: 20140421
  13. OXINORM [Concomitant]
     Active Substance: OXYCODONE HYDROCHLORIDE
     Dosage: 40 MG, PRN
     Route: 048
     Dates: start: 20140126
  14. CALONAL [Concomitant]
     Active Substance: ACETAMINOPHEN
     Dosage: 1800 MG
     Route: 048
     Dates: end: 20140626
  15. LYRICA [Concomitant]
     Active Substance: PREGABALIN
     Indication: ANALGESIC THERAPY
     Dosage: 150 MG
     Route: 048
     Dates: end: 20140128
  16. ROPION [Concomitant]
     Active Substance: FLURBIPROFEN AXETIL
     Dosage: 50 MG
     Route: 051
     Dates: start: 20140527, end: 20140527
  17. XYLOCAINE [Concomitant]
     Active Substance: LIDOCAINE HYDROCHLORIDE
     Indication: ANALGESIC THERAPY
     Dosage: 500 MG
     Route: 051
     Dates: start: 20140508, end: 20140702
  18. METHADONE [Suspect]
     Active Substance: METHADONE HYDROCHLORIDE
     Dosage: 35 MG (105 MG DAILY DOSE)
     Route: 048
     Dates: start: 20140511, end: 20140522
  19. MORPHINE HYDROCHLORIDE HYDRATE [Suspect]
     Active Substance: MORPHINE HYDROCHLORIDE
     Dosage: (384 MG DAILY DOSE)
     Route: 051
     Dates: start: 20140510, end: 20140529
  20. MORPHINE HYDROCHLORIDE HYDRATE [Suspect]
     Active Substance: MORPHINE HYDROCHLORIDE
     Dosage: (528 MG DAILY DOSE)
     Route: 051
     Dates: start: 20140607, end: 20140615
  21. MORPHINE HYDROCHLORIDE HYDRATE [Suspect]
     Active Substance: MORPHINE HYDROCHLORIDE
     Dosage: (624 MG DAILY DOSE)
     Route: 051
     Dates: start: 20140624, end: 20140626
  22. NEXIUM [Concomitant]
     Active Substance: ESOMEPRAZOLE MAGNESIUM
     Dosage: 10 MG
     Route: 048
     Dates: end: 20140626
  23. MEXITIL [Concomitant]
     Active Substance: MEXILETINE HYDROCHLORIDE
     Dosage: 200 MG
     Route: 048
     Dates: end: 20140508
  24. ROPION [Concomitant]
     Active Substance: FLURBIPROFEN AXETIL
     Dosage: 50 MG
     Route: 051
     Dates: start: 20140601, end: 20140601
  25. ROPION [Concomitant]
     Active Substance: FLURBIPROFEN AXETIL
     Dosage: 50 MG
     Route: 051
     Dates: start: 20140622, end: 20140622
  26. METHADONE [Suspect]
     Active Substance: METHADONE HYDROCHLORIDE
     Dosage: 15 MG, (45 MG DAILY DOSE)
     Route: 048
     Dates: start: 20140203, end: 20140209
  27. METHADONE [Suspect]
     Active Substance: METHADONE HYDROCHLORIDE
     Dosage: 30 MG, (90 MG DAILY DOSE)
     Route: 048
     Dates: start: 20140416, end: 20140509
  28. MORPHINE HYDROCHLORIDE HYDRATE [Suspect]
     Active Substance: MORPHINE HYDROCHLORIDE
     Dosage: (96 MG DAILY DOSE)
     Route: 051
     Dates: start: 20140507, end: 20140507
  29. KETALAR [Suspect]
     Active Substance: KETAMINE HYDROCHLORIDE
     Dosage: (150 MG DAILY DOSE)
     Route: 048
     Dates: start: 20140602, end: 20140626
  30. METHADONE [Suspect]
     Active Substance: METHADONE HYDROCHLORIDE
     Dosage: (140 MG DAILY DOSE)
     Route: 048
     Dates: start: 20140618, end: 20140618
  31. METHADONE [Suspect]
     Active Substance: METHADONE HYDROCHLORIDE
     Dosage: 50 MG (150 MG DAILY DOSE)
     Route: 048
     Dates: start: 20140619, end: 20140626
  32. MORPHINE HYDROCHLORIDE HYDRATE [Suspect]
     Active Substance: MORPHINE HYDROCHLORIDE
     Dosage: (48 MG DAILY DOSE)
     Route: 051
     Dates: start: 20140422, end: 20140422
  33. MORPHINE HYDROCHLORIDE HYDRATE [Suspect]
     Active Substance: MORPHINE HYDROCHLORIDE
     Dosage: (432 MG DAILY DOSE)
     Route: 051
     Dates: start: 20140530, end: 20140530
  34. METHADONE [Suspect]
     Active Substance: METHADONE HYDROCHLORIDE
     Dosage: (100 MG DAILY DOSE)
     Route: 048
     Dates: start: 20140510, end: 20140510
  35. MORPHINE HYDROCHLORIDE HYDRATE [Suspect]
     Active Substance: MORPHINE HYDROCHLORIDE
     Indication: ANALGESIC THERAPY
     Dosage: (48 MG DAILY DOSE)
     Route: 058
     Dates: start: 20140416, end: 20140416
  36. MORPHINE HYDROCHLORIDE HYDRATE [Suspect]
     Active Substance: MORPHINE HYDROCHLORIDE
     Dosage: (144 MG DAILY DOSE)
     Route: 051
     Dates: start: 20140419, end: 20140420
  37. MORPHINE HYDROCHLORIDE HYDRATE [Suspect]
     Active Substance: MORPHINE HYDROCHLORIDE
     Dosage: (192 MG DAILY DOSE)
     Route: 051
     Dates: start: 20140508, end: 20140508
  38. KETALAR [Suspect]
     Active Substance: KETAMINE HYDROCHLORIDE
     Indication: ANALGESIC THERAPY
     Dosage: (100 MG DAILY DOSE)
     Route: 048
     Dates: start: 20140129, end: 20140130
  39. KETALAR [Suspect]
     Active Substance: KETAMINE HYDROCHLORIDE
     Dosage: (150 MG DAILY DOSE)
     Route: 048
     Dates: start: 20140131, end: 20140206
  40. ETIZOLAM [Concomitant]
     Active Substance: ETIZOLAM
     Dosage: 0.5 MG
     Route: 048
     Dates: end: 20140626
  41. ROPION [Concomitant]
     Active Substance: FLURBIPROFEN AXETIL
     Dosage: 50 MG
     Route: 051
     Dates: start: 20140608, end: 20140608
  42. ROPION [Concomitant]
     Active Substance: FLURBIPROFEN AXETIL
     Dosage: 50 MG
     Route: 051
     Dates: start: 20140618, end: 20140618
  43. ATARAX-P [Concomitant]
     Active Substance: HYDROXYZINE HYDROCHLORIDE
     Indication: ANALGESIC THERAPY
     Dosage: 25 MG
     Route: 051
     Dates: start: 20140527, end: 20140527
  44. METHADONE [Suspect]
     Active Substance: METHADONE HYDROCHLORIDE
     Dosage: (115 MG DAILY DOSE)
     Route: 048
     Dates: start: 20140523, end: 20140523
  45. METHADONE [Suspect]
     Active Substance: METHADONE HYDROCHLORIDE
     Dosage: 40 MG (120 MG DAILY DOSE)
     Route: 048
     Dates: start: 20140524, end: 20140617
  46. KETALAR [Suspect]
     Active Substance: KETAMINE HYDROCHLORIDE
     Dosage: (100 MG DAILY DOSE)
     Route: 048
     Dates: start: 20140508, end: 20140601
  47. ROPION [Concomitant]
     Active Substance: FLURBIPROFEN AXETIL
     Dosage: 100 MG
     Route: 051
     Dates: start: 20140624, end: 20140626
  48. MORPHINE HYDROCHLORIDE HYDRATE [Suspect]
     Active Substance: MORPHINE HYDROCHLORIDE
     Dosage: (480 MG DAILY DOSE)
     Route: 051
     Dates: start: 20140601, end: 20140606
  49. MORPHINE HYDROCHLORIDE HYDRATE [Suspect]
     Active Substance: MORPHINE HYDROCHLORIDE
     Dosage: (576 MG DAILY DOSE)
     Route: 051
     Dates: start: 20140616, end: 20140623
  50. RINDERON V [Concomitant]
     Active Substance: BETAMETHASONE VALERATE
     Dosage: 1 MG
     Route: 048
     Dates: end: 20140626
  51. CYMBALTA [Concomitant]
     Active Substance: DULOXETINE HYDROCHLORIDE
     Dosage: 20 MG
     Route: 048
     Dates: end: 20140415
  52. MAGMITT [Concomitant]
     Active Substance: MAGNESIUM OXIDE
     Dosage: 1980 MG
     Route: 048
     Dates: end: 20140626
  53. SOLU-MEDROL [Concomitant]
     Active Substance: METHYLPREDNISOLONE SODIUM SUCCINATE
     Dosage: 125 MG
     Route: 051
     Dates: start: 20140416, end: 20140418
  54. ROPION [Concomitant]
     Active Substance: FLURBIPROFEN AXETIL
     Indication: ANALGESIC THERAPY
     Dosage: 150 MG
     Route: 051
     Dates: start: 20140416, end: 20140428
  55. ROPION [Concomitant]
     Active Substance: FLURBIPROFEN AXETIL
     Dosage: 100 MG
     Route: 051
     Dates: start: 20140620, end: 20140621

REACTIONS (8)
  - Pyrexia [Not Recovered/Not Resolved]
  - Somnolence [Recovered/Resolved]
  - Nausea [Recovering/Resolving]
  - Cervix carcinoma [Fatal]
  - Pneumonia [Recovered/Resolved]
  - Dyskinesia [Recovered/Resolved]
  - Oedema [Recovering/Resolving]
  - Dysgeusia [Recovering/Resolving]

NARRATIVE: CASE EVENT DATE: 20140203
